FAERS Safety Report 25082006 (Version 1)
Quarter: 2025Q1

REPORT INFORMATION
  Report Type: Spontaneous
  Country: DK (occurrence: DK)
  Receive Date: 20250317
  Receipt Date: 20250317
  Transmission Date: 20250408
  Serious: Yes (Congenital Anomaly)
  Sender: INDOCO REMEDIES LIMITED
  Company Number: DK-INDOCO-IND-2025-DK-LIT-00373

PATIENT

DRUGS (2)
  1. ALLOPURINOL [Suspect]
     Active Substance: ALLOPURINOL
     Indication: Inflammatory bowel disease
     Route: 064
  2. AZATHIOPRINE [Suspect]
     Active Substance: AZATHIOPRINE
     Indication: Inflammatory bowel disease
     Route: 064

REACTIONS (2)
  - Immune system disorder [Recovered/Resolved]
  - Foetal exposure during pregnancy [Unknown]
